FAERS Safety Report 13375886 (Version 2)
Quarter: 2017Q2

REPORT INFORMATION
  Report Type: Spontaneous
  Country: FR (occurrence: FR)
  Receive Date: 20170328
  Receipt Date: 20170417
  Transmission Date: 20170830
  Serious: Yes (Hospitalization)
  Sender: FDA-Public Use
  Company Number: FR-ACCORD-049570

PATIENT
  Age: 46 Year
  Sex: Female

DRUGS (3)
  1. CYCLOPHOSPHAMIDE/CYCLOPHOSPHAMIDE MONOHYDRATE [Suspect]
     Active Substance: CYCLOPHOSPHAMIDE
     Indication: INVASIVE DUCTAL BREAST CARCINOMA
     Route: 042
     Dates: start: 20170207
  2. EPIRUBICIN [Suspect]
     Active Substance: EPIRUBICIN
     Indication: INVASIVE DUCTAL BREAST CARCINOMA
     Route: 042
     Dates: start: 20170207
  3. FLUOROURACILE ACCORD [Suspect]
     Active Substance: FLUOROURACIL
     Indication: INVASIVE DUCTAL BREAST CARCINOMA
     Dosage: STRENGTH: 50 MG/ML
     Route: 042
     Dates: start: 20170207

REACTIONS (9)
  - Decreased appetite [Unknown]
  - Myalgia [Unknown]
  - Thrombocytopenia [Recovered/Resolved]
  - Influenza like illness [Unknown]
  - Discomfort [Unknown]
  - Headache [Unknown]
  - Febrile neutropenia [Recovering/Resolving]
  - Asthenia [Unknown]
  - Weight decreased [Unknown]

NARRATIVE: CASE EVENT DATE: 20170219
